FAERS Safety Report 10362272 (Version 2)
Quarter: 2014Q3

REPORT INFORMATION
  Report Type: Spontaneous
  Country: FR (occurrence: None)
  Receive Date: 20140723
  Receipt Date: 20140910
  Transmission Date: 20150326
  Serious: Yes (Other)
  Sender: FDA-Public Use
  Company Number: NGX_02164_2013

PATIENT
  Age: 25 Year
  Sex: Female

DRUGS (2)
  1. QUTENZA [Suspect]
     Active Substance: CAPSAICIN
     Indication: NEUROPATHY PERIPHERAL
     Dosage: 1 DF CUTANEUOUS PATCH  TRANDERMAL
     Dates: start: 20130911, end: 20130911
  2. EMLA /00675501 [Concomitant]

REACTIONS (4)
  - Application site erythema [None]
  - Application site vesicles [None]
  - Application site burn [None]
  - Burns second degree [None]

NARRATIVE: CASE EVENT DATE: 20130911
